FAERS Safety Report 19954110 (Version 1)
Quarter: 2021Q4

REPORT INFORMATION
  Report Type: Spontaneous
  Country: US (occurrence: US)
  Receive Date: 20211011
  Receipt Date: 20211011
  Transmission Date: 20220303
  Serious: Yes (Death)
  Sender: FDA-Public Use
  Company Number: None

PATIENT
  Sex: Male

DRUGS (1)
  1. TEMOZOLOMIDE [Suspect]
     Active Substance: TEMOZOLOMIDE
     Indication: Brain neoplasm malignant
     Dosage: TAKE 1 CAPSULE BY MOUTH WITH ONE- 100 MG CAPSULE NIGHTLY. NOTHING TO EAT/DRINK. 1 HOUR BEFORE /AFTER
     Route: 048
     Dates: start: 20210721

REACTIONS (1)
  - Death [None]
